FAERS Safety Report 25612508 (Version 1)
Quarter: 2025Q3

REPORT INFORMATION
  Report Type: Spontaneous
  Country: US (occurrence: None)
  Receive Date: 20250726
  Receipt Date: 20250726
  Transmission Date: 20251020
  Serious: Yes (Life-Threatening, Hospitalization)
  Sender: FDA-CTU
  Company Number: None

PATIENT
  Age: 44 Year
  Sex: Female
  Weight: 112.5 kg

DRUGS (7)
  1. WEGOVY [Suspect]
     Active Substance: SEMAGLUTIDE
     Indication: Weight decreased
     Route: 058
     Dates: start: 20240210, end: 20250622
  2. WEGOVY [Suspect]
     Active Substance: SEMAGLUTIDE
     Indication: Post-acute COVID-19 syndrome
  3. WEGOVY [Suspect]
     Active Substance: SEMAGLUTIDE
     Indication: Asthma
  4. WEGOVY [Suspect]
     Active Substance: SEMAGLUTIDE
     Indication: Post-acute COVID-19 syndrome
  5. WEGOVY [Suspect]
     Active Substance: SEMAGLUTIDE
     Indication: Asthma
  6. Propranolol Fluoxetine Losartin Rizatriptan (as needed) [Concomitant]
  7. Probiotics Elderberry (as needed) [Concomitant]

REACTIONS (3)
  - Gastroenteritis viral [None]
  - Chills [None]
  - Tremor [None]

NARRATIVE: CASE EVENT DATE: 20250713
